FAERS Safety Report 6595387-8 (Version None)
Quarter: 2010Q1

REPORT INFORMATION
  Report Type: 
  Country: None (occurrence: None)
  Receive Date: 20100223
  Receipt Date: 20100210
  Transmission Date: 20100710
  Serious: Yes (Other)
  Sender: FDA-Public Use
  Company Number: US-BIOGENIDEC-2010BI004989

PATIENT
  Age: 30 Year
  Sex: Female
  Weight: 80 kg

DRUGS (3)
  1. AVONEX [Suspect]
     Indication: MULTIPLE SCLEROSIS
     Route: 030
     Dates: start: 19980101, end: 20010701
  2. AVONEX [Suspect]
     Route: 030
     Dates: start: 20040101, end: 20070201
  3. AVONEX [Suspect]
     Route: 030

REACTIONS (1)
  - STAPHYLOCOCCUS TEST POSITIVE [None]
